FAERS Safety Report 6336064-8 (Version None)
Quarter: 2009Q3

REPORT INFORMATION
  Report Type: 
  Country: None (occurrence: None)
  Receive Date: 20090901
  Receipt Date: 20090827
  Transmission Date: 20100115
  Serious: Yes (Death, Hospitalization)
  Sender: FDA-Public Use
  Company Number: JP-JNJFOC-20090502650

PATIENT
  Sex: Male
  Weight: 69 kg

DRUGS (21)
  1. FENTANYL [Suspect]
     Route: 062
  2. FENTANYL [Suspect]
     Route: 062
  3. FENTANYL [Suspect]
     Route: 062
  4. FENTANYL [Suspect]
     Indication: PAIN
     Route: 062
  5. FENTANYL [Suspect]
     Route: 062
  6. FENTANYL [Suspect]
     Route: 062
  7. FENTANYL [Suspect]
     Route: 062
  8. FENTANYL [Suspect]
     Route: 062
  9. FENTANYL [Suspect]
     Route: 062
  10. FENTANYL [Suspect]
     Route: 062
  11. FENTANYL [Suspect]
     Route: 062
  12. MAGNESIUM OXIDE [Concomitant]
     Indication: CONSTIPATION
     Route: 048
  13. PURSENNID [Concomitant]
     Indication: CONSTIPATION
     Route: 048
  14. SENNOSIDE (UNSPECIFIED) [Concomitant]
     Indication: CONSTIPATION
     Route: 048
  15. RIVOTRIL [Concomitant]
     Indication: PAIN
     Route: 048
  16. BENZALIN [Concomitant]
     Indication: PAIN
     Route: 048
  17. GABAPEN [Concomitant]
     Indication: PAIN
     Route: 048
  18. TRYPTANOL [Concomitant]
     Indication: PAIN
     Route: 048
  19. BROTIZOLAM [Concomitant]
     Indication: PAIN
     Route: 048
  20. MYSLEE [Concomitant]
     Indication: PAIN
     Route: 048
  21. MORPHINE HYDROCHLORIDE [Concomitant]
     Indication: PAIN
     Route: 048

REACTIONS (2)
  - MELAENA [None]
  - PANCREATIC CARCINOMA [None]
